FAERS Safety Report 8350030-2 (Version None)
Quarter: 2012Q2

REPORT INFORMATION
  Report Type: 
  Country: None (occurrence: None)
  Receive Date: 20120510
  Receipt Date: 20120501
  Transmission Date: 20120825
  Serious: Yes (Hospitalization)
  Sender: FDA-Public Use
  Company Number: US-ACTELION-A-US2011-57474

PATIENT

DRUGS (1)
  1. TRACLEER [Suspect]
     Indication: PULMONARY ARTERIAL HYPERTENSION
     Dosage: UNK
     Route: 048
     Dates: start: 20110520

REACTIONS (6)
  - FATIGUE [None]
  - BLOOD DISORDER [None]
  - VOMITING [None]
  - SICKLE CELL ANAEMIA WITH CRISIS [None]
  - PYREXIA [None]
  - NAUSEA [None]
